FAERS Safety Report 9128241 (Version 1)
Quarter: 2013Q1

REPORT INFORMATION
  Report Type: Spontaneous
  Country: US (occurrence: US)
  Receive Date: 20130228
  Receipt Date: 20130228
  Transmission Date: 20140127
  Serious: No
  Sender: FDA-Public Use
  Company Number: US-ABBOTT-12P-163-1028490-00

PATIENT
  Age: 58 Year
  Sex: Female
  Weight: 62.65 kg

DRUGS (4)
  1. ANDROGEL [Suspect]
     Indication: LIBIDO DECREASED
     Dates: start: 20121218, end: 20121221
  2. ANDROGEL [Suspect]
     Indication: VULVOVAGINAL DRYNESS
  3. SYNTHROID [Concomitant]
     Indication: HYPOTHYROIDISM
  4. CRESTOR [Concomitant]
     Indication: BLOOD CHOLESTEROL ABNORMAL

REACTIONS (5)
  - Skin burning sensation [Recovered/Resolved]
  - Off label use [Unknown]
  - Drug administered at inappropriate site [Unknown]
  - Skin burning sensation [Recovered/Resolved]
  - Vulvovaginal burning sensation [Recovered/Resolved]
